FAERS Safety Report 6822420-8 (Version None)
Quarter: 2010Q3

REPORT INFORMATION
  Report Type: 
  Country: None (occurrence: None)
  Receive Date: 20100708
  Receipt Date: 20100701
  Transmission Date: 20110219
  Serious: Yes (Hospitalization)
  Sender: FDA-Public Use
  Company Number: PHHY2010BR43945

PATIENT
  Sex: Female

DRUGS (2)
  1. FORADIL [Suspect]
     Indication: ASTHMA
     Dosage: 2 DF DAILY
  2. MIFLASONE [Suspect]
     Indication: ASTHMA
     Dosage: 2 DF DAILY

REACTIONS (3)
  - CAESAREAN SECTION [None]
  - CERVIX DYSTOCIA [None]
  - DRUG EXPOSURE DURING PREGNANCY [None]
